FAERS Safety Report 6283541-4 (Version None)
Quarter: 2009Q3

REPORT INFORMATION
  Report Type: 
  Country: None (occurrence: None)
  Receive Date: 20090724
  Receipt Date: 20090713
  Transmission Date: 20100115
  Serious: Yes (Hospitalization)
  Sender: FDA-Public Use
  Company Number: BE-ELI_LILLY_AND_COMPANY-BE200812005229

PATIENT
  Sex: Female
  Weight: 75 kg

DRUGS (6)
  1. FORTEO [Suspect]
     Indication: OSTEOPOROSIS
     Dosage: 20 UG, DAILY (1/D)
     Route: 058
     Dates: start: 20080509
  2. FORTEO [Suspect]
     Dosage: UNK, UNKNOWN
     Route: 065
  3. ZOLPIDEM TARTRATE [Concomitant]
     Indication: INSOMNIA
     Dosage: UNK D/F, DAILY (1/D)
     Route: 048
     Dates: start: 20000101
  4. CALCITE [Concomitant]
     Indication: OSTEOPOROSIS
     Dosage: 1 D/F, DAILY (1/D)
     Route: 048
     Dates: start: 20000101
  5. DAFALGAN [Concomitant]
     Indication: PAIN
     Dosage: 1- 4 D/F, DAILY (1/D)
     Route: 048
     Dates: start: 20080403
  6. SERTRALINE [Concomitant]
     Indication: DEPRESSION
     Dosage: 1 D/F, DAILY (1/D)
     Dates: start: 20090105

REACTIONS (2)
  - BLOOD PRESSURE INCREASED [None]
  - BONE PAIN [None]
